FAERS Safety Report 20539241 (Version 2)
Quarter: 2022Q1

REPORT INFORMATION
  Report Type: Spontaneous
  Country: CN (occurrence: CN)
  Receive Date: 20220302
  Receipt Date: 20220304
  Transmission Date: 20220423
  Serious: Yes (Death, Other)
  Sender: FDA-Public Use
  Company Number: CN-BAYER-2022A031317

PATIENT
  Age: 37 Year
  Sex: Male

DRUGS (2)
  1. STIVARGA [Suspect]
     Active Substance: REGORAFENIB
     Indication: Colorectal cancer
     Dosage: 160 MG, QD
     Route: 048
     Dates: start: 20201224, end: 202111
  2. SINTILIMAB [Concomitant]
     Active Substance: SINTILIMAB
     Dosage: UNK
     Dates: start: 20210813, end: 20211106

REACTIONS (7)
  - Febrile infection [Fatal]
  - Colorectal cancer [None]
  - Metastases to lymph nodes [None]
  - Palmar-plantar erythrodysaesthesia syndrome [None]
  - Diarrhoea [None]
  - Asthenia [None]
  - Blood bilirubin increased [None]

NARRATIVE: CASE EVENT DATE: 20201201
